FAERS Safety Report 7369129-2 (Version None)
Quarter: 2011Q1

REPORT INFORMATION
  Report Type: 
  Country: None (occurrence: None)
  Receive Date: 20110323
  Receipt Date: 20110316
  Transmission Date: 20110831
  Serious: Yes (Hospitalization, Other)
  Sender: FDA-Public Use
  Company Number: GB-ROCHE-753520

PATIENT
  Sex: Female
  Weight: 67 kg

DRUGS (1)
  1. LARIAM [Suspect]
     Indication: MALARIA PROPHYLAXIS
     Dosage: 4 TABLETS DISPENSED
     Route: 048
     Dates: start: 20070122, end: 20070212

REACTIONS (4)
  - INSOMNIA [None]
  - DEPRESSED MOOD [None]
  - WEIGHT DECREASED [None]
  - MAJOR DEPRESSION [None]
